FAERS Safety Report 6636346-6 (Version None)
Quarter: 2010Q1

REPORT INFORMATION
  Report Type: 
  Country: None (occurrence: None)
  Receive Date: 20100316
  Receipt Date: 20100310
  Transmission Date: 20100710
  Serious: Yes (Hospitalization)
  Sender: FDA-Public Use
  Company Number: ES-JNJFOC-20100303442

PATIENT
  Age: 62 Year
  Sex: Female
  Weight: 65 kg

DRUGS (1)
  1. REMICADE [Suspect]
     Indication: RHEUMATOID ARTHRITIS
     Route: 042

REACTIONS (3)
  - ASTHMA [None]
  - INFECTION [None]
  - UPPER RESPIRATORY TRACT INFECTION [None]
